FAERS Safety Report 25918751 (Version 1)
Quarter: 2025Q4

REPORT INFORMATION
  Report Type: Spontaneous
  Country: US (occurrence: None)
  Receive Date: 20251010
  Receipt Date: 20251010
  Transmission Date: 20260118
  Serious: Yes (Other)
  Sender: FDA-CTU
  Company Number: None

PATIENT
  Age: 71 Year
  Sex: Male

DRUGS (1)
  1. NUPLAZID [Suspect]
     Active Substance: PIMAVANSERIN TARTRATE
     Indication: Psychotic disorder
     Dosage: 34 MG DAILY ORAL
     Route: 048
     Dates: start: 20250930

REACTIONS (4)
  - Dizziness [None]
  - Fatigue [None]
  - Fall [None]
  - Muscular weakness [None]

NARRATIVE: CASE EVENT DATE: 20251010
